FAERS Safety Report 8312086-2 (Version None)
Quarter: 2012Q2

REPORT INFORMATION
  Report Type: 
  Country: None (occurrence: None)
  Receive Date: 20120425
  Receipt Date: 20120419
  Transmission Date: 20120825
  Serious: Yes (Hospitalization)
  Sender: FDA-Public Use
  Company Number: BE-BRISTOL-MYERS SQUIBB COMPANY-16517591

PATIENT
  Age: 55 Year
  Sex: Male

DRUGS (14)
  1. MYCOPHENOLIC ACID [Concomitant]
     Dates: start: 20070423
  2. EZETIMIBE [Concomitant]
     Dates: start: 20090901
  3. AGGRENOX [Concomitant]
     Dates: start: 20070422
  4. EZETIMIBE/SIMVASTATIN [Concomitant]
     Dates: start: 20100920
  5. DOVOBET [Concomitant]
     Dates: start: 20080805
  6. ENOXAPARIN SODIUM [Concomitant]
     Dates: start: 20100417
  7. BELATACEPT [Suspect]
     Indication: RENAL TRANSPLANT
     Dosage: 1 MONTHLY
     Route: 042
     Dates: start: 20061004
  8. GLIQUIDONE [Concomitant]
     Dates: start: 20061007
  9. GLURENORM [Concomitant]
     Dates: start: 20091007
  10. ACETYLCYSTEINE [Concomitant]
     Dates: start: 20080121
  11. SIMVASTATIN [Concomitant]
     Dates: start: 20070115
  12. METFORMIN HCL [Concomitant]
     Dates: start: 20100920
  13. MOMETASONE FUROATE [Concomitant]
     Dates: start: 20080805
  14. NYSTATIN [Concomitant]
     Dates: start: 20070416

REACTIONS (3)
  - LYMPHANGITIS [None]
  - CELLULITIS [None]
  - OEDEMA PERIPHERAL [None]
